FAERS Safety Report 6355910-5 (Version None)
Quarter: 2009Q3

REPORT INFORMATION
  Report Type: 
  Country: None (occurrence: None)
  Receive Date: 20090915
  Receipt Date: 20090909
  Transmission Date: 20100115
  Serious: Yes (Other)
  Sender: FDA-Public Use
  Company Number: TR-JNJFOC-20090904239

PATIENT
  Age: 15 Year
  Sex: Male

DRUGS (1)
  1. CONCERTA [Suspect]
     Indication: ATTENTION DEFICIT/HYPERACTIVITY DISORDER
     Dosage: TOTAL TREATMENT FOR 1.5 YEARS
     Route: 048

REACTIONS (3)
  - PULMONARY HYPERTENSION [None]
  - RESPIRATORY DISORDER [None]
  - WEIGHT INCREASED [None]
